FAERS Safety Report 5664821-X (Version None)
Quarter: 2008Q1

REPORT INFORMATION
  Report Type: 
  Country: None (occurrence: None)
  Receive Date: 20080314
  Receipt Date: 20080304
  Transmission Date: 20080703
  Serious: Yes (Other)
  Sender: FDA-Public Use
  Company Number: US-PFIZER INC-2007094321

PATIENT
  Sex: Female
  Weight: 90.909 kg

DRUGS (11)
  1. CHANTIX [Suspect]
     Indication: SMOKING CESSATION THERAPY
     Route: 048
     Dates: start: 20071021, end: 20071021
  2. PREDNISONE TAB [Suspect]
     Indication: RASH
     Route: 048
  3. PREDNISONE TAB [Suspect]
     Indication: URTICARIA
  4. DEPO-MEDROL [Suspect]
     Route: 051
     Dates: start: 20071023, end: 20071023
  5. BENADRYL [Suspect]
     Indication: RASH
  6. BENADRYL [Suspect]
     Indication: SWELLING
     Route: 048
     Dates: start: 20071022, end: 20071022
  7. BENADRYL [Suspect]
     Route: 042
     Dates: start: 20071022, end: 20071022
  8. EPINEPHRINE [Suspect]
     Route: 030
     Dates: start: 20071022, end: 20071022
  9. PEPCID [Suspect]
     Route: 042
     Dates: start: 20071022, end: 20071022
  10. AVEENO BATH [Suspect]
     Indication: PRURITUS
  11. BONTRIL [Concomitant]

REACTIONS (15)
  - ANGIOEDEMA [None]
  - BLOOD PRESSURE INCREASED [None]
  - BURNING SENSATION [None]
  - EMOTIONAL DISTRESS [None]
  - ERYTHEMA [None]
  - HEART RATE INCREASED [None]
  - HYPERSENSITIVITY [None]
  - OEDEMA PERIPHERAL [None]
  - PAIN [None]
  - PHARYNGEAL OEDEMA [None]
  - POOR QUALITY SLEEP [None]
  - PRURITUS [None]
  - RASH [None]
  - SWOLLEN TONGUE [None]
  - URTICARIA [None]
